FAERS Safety Report 8029573-7 (Version None)
Quarter: 2012Q1

REPORT INFORMATION
  Report Type: 
  Country: None (occurrence: None)
  Receive Date: 20120109
  Receipt Date: 20120103
  Transmission Date: 20120608
  Serious: No
  Sender: FDA-Public Use
  Company Number: US-PFIZER INC-2012001215

PATIENT

DRUGS (2)
  1. LIDOCAINE HYDROCHLORIDE [Suspect]
     Dosage: UNK
  2. LEVOXYL [Concomitant]
     Indication: THYROID DISORDER
     Dosage: 0.025 MG, UNK

REACTIONS (1)
  - HEART RATE INCREASED [None]
